FAERS Safety Report 8405694-1 (Version None)
Quarter: 2012Q2

REPORT INFORMATION
  Report Type: 
  Country: None (occurrence: None)
  Receive Date: 20120604
  Receipt Date: 20120522
  Transmission Date: 20120825
  Serious: Yes (Hospitalization)
  Sender: FDA-Public Use
  Company Number: US-GE HEALTHCARE MEDICAL DIAGNOSTICS-OMPQ-PR-1205S-0508

PATIENT
  Sex: Female

DRUGS (5)
  1. BENADRYL [Suspect]
     Route: 042
     Dates: start: 20120203, end: 20120203
  2. OMNIPAQUE 140 [Suspect]
     Indication: COGNITIVE DISORDER
     Route: 042
     Dates: start: 20120203, end: 20120203
  3. OMNIPAQUE 140 [Suspect]
     Indication: CEREBRAL HAEMORRHAGE
  4. OMNIPAQUE 140 [Suspect]
     Indication: DIAGNOSTIC PROCEDURE
  5. BENADRYL [Suspect]
     Indication: ANAPHYLACTOID REACTION
     Route: 042
     Dates: start: 20120203, end: 20120203

REACTIONS (10)
  - HYPOAESTHESIA [None]
  - ANAPHYLACTOID REACTION [None]
  - DYSPNOEA [None]
  - THROAT TIGHTNESS [None]
  - DIZZINESS [None]
  - THROAT IRRITATION [None]
  - PROTEINURIA [None]
  - MALAISE [None]
  - SNEEZING [None]
  - AMNESIA [None]
